FAERS Safety Report 6233451-3 (Version None)
Quarter: 2009Q2

REPORT INFORMATION
  Report Type: 
  Country: None (occurrence: None)
  Receive Date: 20090616
  Receipt Date: 20090616
  Transmission Date: 20091009
  Serious: Yes (Other)
  Sender: FDA-Public Use
  Company Number: None

PATIENT
  Age: 54 Year
  Sex: Female
  Weight: 96.1626 kg

DRUGS (3)
  1. ARIMIDEX [Suspect]
     Indication: NEOPLASM MALIGNANT
     Dosage: ONE TABLET DAILY PO
     Route: 048
     Dates: start: 20080712, end: 20080712
  2. ARIMIDEX [Concomitant]
  3. LORTAB [Concomitant]

REACTIONS (5)
  - BALANCE DISORDER [None]
  - BLOOD COUNT ABNORMAL [None]
  - BONE PAIN [None]
  - FATIGUE [None]
  - INSOMNIA [None]
